FAERS Safety Report 14505915 (Version 1)
Quarter: 2018Q1

REPORT INFORMATION
  Report Type: Spontaneous
  Country: US (occurrence: US)
  Receive Date: 20180208
  Receipt Date: 20180208
  Transmission Date: 20180509
  Serious: No
  Sender: FDA-Public Use
  Company Number: US-HQ SPECIALTY-US-2017INT000440

PATIENT

DRUGS (1)
  1. TAXOL [Suspect]
     Active Substance: PACLITAXEL
     Indication: BREAST CANCER METASTATIC
     Dosage: 130 MG, (EVERY WEEK) VIALS
     Route: 042
     Dates: start: 20171121, end: 2017

REACTIONS (2)
  - Nail bed disorder [Unknown]
  - Nail discolouration [Unknown]

NARRATIVE: CASE EVENT DATE: 2017
